FAERS Safety Report 10080169 (Version 1)
Quarter: 2014Q2

REPORT INFORMATION
  Report Type: Spontaneous
  Country: ES (occurrence: ES)
  Receive Date: 20140415
  Receipt Date: 20140415
  Transmission Date: 20141212
  Serious: Yes (Other)
  Sender: FDA-Public Use
  Company Number: ES-MYLANLABS-2014S1007986

PATIENT
  Age: 2 Year
  Sex: Female
  Weight: 11.2 kg

DRUGS (1)
  1. FENTANYL [Suspect]
     Indication: ACCIDENTAL OVERDOSE
     Dosage: 400 MCG; UNKNOWN NUMBER OF SPRAYS
     Route: 045

REACTIONS (8)
  - Toxicity to various agents [Recovering/Resolving]
  - Accidental overdose [Recovering/Resolving]
  - Nausea [Recovering/Resolving]
  - Agitation [Unknown]
  - Respiratory distress [Unknown]
  - Tachycardia [Unknown]
  - Miosis [Unknown]
  - Pupil fixed [Unknown]
